FAERS Safety Report 23866455 (Version 2)
Quarter: 2024Q2

REPORT INFORMATION
  Report Type: Spontaneous
  Country: US (occurrence: US)
  Receive Date: 20240517
  Receipt Date: 20240517
  Transmission Date: 20240716
  Serious: No
  Sender: FDA-Public Use
  Company Number: US-ABBVIE-5763954

PATIENT
  Sex: Female
  Weight: 98 kg

DRUGS (5)
  1. ARMOUR THYROID [Suspect]
     Active Substance: THYROID, PORCINE
     Indication: Hyperthyroidism
     Dosage: FORM STRENGTH: 120 MILLIGRAM
     Route: 048
     Dates: start: 2015
  2. ARMOUR THYROID [Suspect]
     Active Substance: THYROID, PORCINE
     Indication: Hyperthyroidism
     Dosage: FORM STRENGTH: 15 MG
     Route: 048
  3. HYDROXYCHLOROQUINE [Concomitant]
     Active Substance: HYDROXYCHLOROQUINE
     Indication: Osteoarthritis
  4. ALLEGRA [Concomitant]
     Active Substance: FEXOFENADINE HYDROCHLORIDE
     Indication: Hypersensitivity
  5. METFORMIN [Concomitant]
     Active Substance: METFORMIN HYDROCHLORIDE
     Indication: Diabetes mellitus

REACTIONS (6)
  - Palpitations [Recovered/Resolved]
  - Weight increased [Recovered/Resolved]
  - Unevaluable event [Unknown]
  - Lethargy [Recovered/Resolved]
  - Irritability [Recovered/Resolved]
  - Hallucination, auditory [Recovered/Resolved]
